FAERS Safety Report 7389892-4 (Version None)
Quarter: 2011Q2

REPORT INFORMATION
  Report Type: 
  Country: None (occurrence: None)
  Receive Date: 20110401
  Receipt Date: 20110318
  Transmission Date: 20111010
  Serious: Yes (Hospitalization)
  Sender: FDA-Public Use
  Company Number: US-BAYER-2011-000424

PATIENT
  Sex: Female
  Weight: 77 kg

DRUGS (9)
  1. PAXIL [Concomitant]
     Dosage: 20 MG, QD
  2. YASMIN [Suspect]
     Indication: ACNE
     Route: 048
  3. MULTI-VITAMINS [Concomitant]
     Dosage: UNK UNK, BID
  4. IRON [IRON] [Concomitant]
     Dosage: UNK UNK, BID
     Dates: start: 20060101
  5. SYNTHROID [Concomitant]
     Dosage: 200 MCG/24HR, UNK
  6. OCELLA [Suspect]
     Indication: ACNE
     Route: 048
  7. VITAMIN B-12 [Concomitant]
     Dosage: 250 MG, QD
     Dates: start: 20060101
  8. YAZ [Suspect]
     Indication: ACNE
     Route: 048
  9. FOLIC ACID [Concomitant]
     Dosage: 400 MG, QD
     Dates: start: 20060101

REACTIONS (4)
  - PAIN [None]
  - GALLBLADDER DISORDER [None]
  - CHOLECYSTITIS CHRONIC [None]
  - INJURY [None]
